FAERS Safety Report 9519524 (Version 1)
Quarter: 2013Q3

REPORT INFORMATION
  Report Type: Report from Study
  Country: DE (occurrence: DE)
  Receive Date: 20130912
  Receipt Date: 20130912
  Transmission Date: 20140515
  Serious: Yes (Hospitalization)
  Sender: FDA-Public Use
  Company Number: DE-PFIZER INC-2013257773

PATIENT
  Age: 54 Year
  Sex: Female
  Weight: 53 kg

DRUGS (4)
  1. EXEMESTANE [Suspect]
     Indication: BREAST CANCER
     Dosage: 25 MG, 1X/DAY
     Dates: start: 20130506, end: 20130524
  2. AFINITOR [Suspect]
     Indication: BREAST CANCER
     Dosage: 10 MG, 1X/DAY
     Dates: start: 20130506, end: 20130524
  3. SEVREDOL [Suspect]
     Dosage: 20 MG, AS NEEDED
     Dates: start: 20130513, end: 20130603
  4. FENTANYL [Concomitant]
     Dosage: 37.5 MG, EVERY THREE DAYS
     Dates: start: 20121029, end: 20130603

REACTIONS (1)
  - Bradypnoea [Recovered/Resolved]
